FAERS Safety Report 5572968-1 (Version None)
Quarter: 2007Q4

REPORT INFORMATION
  Report Type: 
  Country: None (occurrence: None)
  Receive Date: 20071224
  Receipt Date: 20071217
  Transmission Date: 20080405
  Serious: Yes (Other)
  Sender: FDA-Public Use
  Company Number: BE-BRISTOL-MYERS SQUIBB COMPANY-14022131

PATIENT
  Age: 77 Year
  Sex: Female

DRUGS (1)
  1. KENACORT [Suspect]
     Indication: CARPAL TUNNEL SYNDROME
     Route: 014

REACTIONS (1)
  - ADVERSE EVENT [None]
